FAERS Safety Report 21274124 (Version 2)
Quarter: 2022Q3

REPORT INFORMATION
  Report Type: Spontaneous
  Country: ES (occurrence: ES)
  Receive Date: 20220831
  Receipt Date: 20220901
  Transmission Date: 20221026
  Serious: Yes (Hospitalization, Other)
  Sender: FDA-Public Use
  Company Number: ES-PFIZER INC-202201103037

PATIENT
  Age: 50 Year
  Sex: Female

DRUGS (3)
  1. MEROPENEM [Suspect]
     Active Substance: MEROPENEM
     Indication: Klebsiella infection
     Dosage: UNK
     Dates: start: 2022
  2. AMIKACIN [Concomitant]
     Active Substance: AMIKACIN
     Dosage: UNK
     Dates: start: 2022
  3. IRBESARTAN [Concomitant]
     Active Substance: IRBESARTAN
     Dosage: UNK
     Dates: start: 2022

REACTIONS (7)
  - Drug ineffective [Unknown]
  - Weaning failure [Unknown]
  - Lung disorder [Unknown]
  - Pyrexia [Unknown]
  - White blood cell count increased [Unknown]
  - Respiratory failure [Unknown]
  - Purulence [Unknown]

NARRATIVE: CASE EVENT DATE: 20220101
